FAERS Safety Report 12437455 (Version 1)
Quarter: 2016Q2

REPORT INFORMATION
  Report Type: Spontaneous
  Country: US (occurrence: US)
  Receive Date: 20160606
  Receipt Date: 20160606
  Transmission Date: 20160815
  Serious: Yes (Other)
  Sender: FDA-Public Use
  Company Number: US-IPSEN BIOPHARMACEUTICALS, INC.-2016-04850

PATIENT
  Age: 33 Year
  Sex: Female
  Weight: 56.7 kg

DRUGS (4)
  1. DYSPORT [Suspect]
     Active Substance: ABOBOTULINUMTOXINA
     Indication: SKIN WRINKLING
  2. DYSPORT [Suspect]
     Active Substance: ABOBOTULINUMTOXINA
     Indication: PRODUCT USE ISSUE
  3. DYSPORT [Suspect]
     Active Substance: ABOBOTULINUMTOXINA
     Indication: SKIN WRINKLING
     Dosage: NOT REPORTED
     Route: 065
     Dates: start: 20160318, end: 20160318
  4. HERBAL SUPPLEMENTS [Concomitant]

REACTIONS (17)
  - Oxygen saturation decreased [Unknown]
  - Chest pain [Recovered/Resolved]
  - Chest discomfort [Recovered/Resolved]
  - Vasospasm [Unknown]
  - Swelling face [Not Recovered/Not Resolved]
  - Muscle twitching [Recovered/Resolved]
  - Anxiety [Unknown]
  - Pain in extremity [Unknown]
  - Muscle spasms [Unknown]
  - Blood pressure increased [Unknown]
  - Cyanosis [Recovered/Resolved]
  - Hypoaesthesia [Recovered/Resolved]
  - Neck pain [Unknown]
  - Paraesthesia [Not Recovered/Not Resolved]
  - Haematochezia [Unknown]
  - Heart rate increased [Unknown]
  - Hypersensitivity [Unknown]

NARRATIVE: CASE EVENT DATE: 2016
